FAERS Safety Report 14301005 (Version 1)
Quarter: 2017Q4

REPORT INFORMATION
  Report Type: Spontaneous
  Country: IL (occurrence: IL)
  Receive Date: 20171219
  Receipt Date: 20171219
  Transmission Date: 20180321
  Serious: Yes (Hospitalization)
  Sender: FDA-Public Use
  Company Number: IL-INGENUS PHARMACEUTICALS NJ, LLC-ING201712-000678

PATIENT
  Age: 18 Year
  Sex: Female

DRUGS (3)
  1. TAZOBACTAM [Concomitant]
     Active Substance: TAZOBACTAM
     Indication: PYREXIA
  2. PROBENECID AND COLCHICINE [Suspect]
     Active Substance: COLCHICINE\PROBENECID
  3. PIPERACILLIN [Concomitant]
     Active Substance: PIPERACILLIN
     Indication: PYREXIA

REACTIONS (17)
  - Toxicity to various agents [Recovering/Resolving]
  - Acute lung injury [Recovered/Resolved]
  - Disseminated intravascular coagulation [Recovering/Resolving]
  - Hypophosphataemia [Recovered/Resolved]
  - Mucosal haemorrhage [Recovering/Resolving]
  - Hypertriglyceridaemia [Recovering/Resolving]
  - Abdominal pain [Recovering/Resolving]
  - Electrolyte imbalance [Recovering/Resolving]
  - Diarrhoea [Recovering/Resolving]
  - Intentional overdose [Recovering/Resolving]
  - Bone marrow failure [Recovering/Resolving]
  - Conjunctival haemorrhage [Recovering/Resolving]
  - Pancytopenia [Recovered/Resolved]
  - Hypocholesterolaemia [Recovering/Resolving]
  - Hypozincaemia [Recovering/Resolving]
  - Rhabdomyolysis [Recovering/Resolving]
  - Vomiting [Recovering/Resolving]
